FAERS Safety Report 7427846-X (Version None)
Quarter: 2011Q2

REPORT INFORMATION
  Report Type: 
  Country: None (occurrence: None)
  Receive Date: 20110413
  Receipt Date: 20110329
  Transmission Date: 20111010
  Serious: Yes (Other)
  Sender: FDA-Public Use
  Company Number: FK201100571

PATIENT
  Age: 51 Year
  Sex: Female

DRUGS (1)
  1. METHYLPREDNISOLONE SODIUM SUCCINATE [Suspect]
     Indication: MYELITIS
     Dosage: INTRAVENOUS
     Route: 042

REACTIONS (4)
  - GAIT DISTURBANCE [None]
  - PARAPLEGIA [None]
  - SPINAL DISORDER [None]
  - ARTERIOVENOUS FISTULA [None]
